FAERS Safety Report 6535296-3 (Version None)
Quarter: 2010Q1

REPORT INFORMATION
  Report Type: 
  Country: None (occurrence: None)
  Receive Date: 20100113
  Receipt Date: 20100111
  Transmission Date: 20100710
  Serious: Yes (Other)
  Sender: FDA-Public Use
  Company Number: DE-ROCHE-672366

PATIENT
  Sex: Female
  Weight: 60 kg

DRUGS (2)
  1. ROCEPHIN [Suspect]
     Route: 042
     Dates: start: 20091126, end: 20091202
  2. PARACETAMOL [Concomitant]
     Route: 048
     Dates: start: 20091126, end: 20091204

REACTIONS (1)
  - PSYCHOTIC DISORDER [None]
